FAERS Safety Report 23933325 (Version 1)
Quarter: 2024Q2

REPORT INFORMATION
  Report Type: Spontaneous
  Country: CA (occurrence: CA)
  Receive Date: 20240603
  Receipt Date: 20240603
  Transmission Date: 20240716
  Serious: Yes (Other)
  Sender: FDA-Public Use
  Company Number: CA-002147023-NVSC2024CA012740

PATIENT
  Age: 54 Year
  Sex: Female

DRUGS (2)
  1. DICLOFENAC DIETHYLAMINE [Suspect]
     Active Substance: DICLOFENAC DIETHYLAMINE
     Indication: Product used for unknown indication
     Route: 065
  2. ARAVA [Concomitant]
     Active Substance: LEFLUNOMIDE
     Indication: Product used for unknown indication
     Dosage: 10 MG, QD
     Route: 065
     Dates: end: 20200407

REACTIONS (16)
  - Seronegative arthritis [Unknown]
  - Nausea [Unknown]
  - Arthralgia [Unknown]
  - Abdominal pain [Unknown]
  - Synovitis [Unknown]
  - Bone deformity [Unknown]
  - Spinal osteoarthritis [Unknown]
  - Diarrhoea [Unknown]
  - Neck pain [Unknown]
  - Pain [Unknown]
  - Foot deformity [Unknown]
  - Gastrointestinal disorder [Unknown]
  - Tendon disorder [Unknown]
  - Arthritis [Unknown]
  - Joint space narrowing [Unknown]
  - Fall [Unknown]
